FAERS Safety Report 7249721-6 (Version None)
Quarter: 2011Q1

REPORT INFORMATION
  Report Type: 
  Country: None (occurrence: None)
  Receive Date: 20110128
  Receipt Date: 20110111
  Transmission Date: 20110831
  Serious: Yes (Other)
  Sender: FDA-Public Use
  Company Number: US-PFIZER INC-US-WYE-H10850509

PATIENT
  Sex: Female
  Weight: 60.8 kg

DRUGS (8)
  1. ESTRING [Suspect]
     Dosage: ^2^
     Route: 067
     Dates: start: 20050101
  2. ATIVAN [Concomitant]
     Route: 065
  3. NORVASC [Concomitant]
     Route: 065
  4. SYNTHROID [Concomitant]
     Route: 065
  5. PREMPRO [Suspect]
     Indication: MENOPAUSAL SYMPTOMS
     Dosage: 1 DF, 1X/DAY
     Route: 048
     Dates: start: 20090101, end: 20090820
  6. RESTORIL [Concomitant]
     Route: 065
  7. LIPITOR [Concomitant]
     Route: 065
  8. EFFEXOR [Concomitant]
     Route: 065

REACTIONS (1)
  - UTERINE HAEMORRHAGE [None]
